FAERS Safety Report 17677120 (Version 2)
Quarter: 2020Q3

REPORT INFORMATION
  Report Type: Report from Study
  Country: US (occurrence: US)
  Receive Date: 20200416
  Receipt Date: 20200721
  Transmission Date: 20201102
  Serious: Yes (Hospitalization, Other)
  Sender: FDA-Public Use
  Company Number: US-AGIOS-2004US01818

PATIENT

DRUGS (1)
  1. TIBSOVO [Suspect]
     Active Substance: IVOSIDENIB
     Indication: CHOLANGIOCARCINOMA
     Dosage: 250MG BID
     Route: 048
     Dates: start: 20200320, end: 20200613

REACTIONS (14)
  - Off label use [Unknown]
  - Malaise [Unknown]
  - Illness [Unknown]
  - Ammonia increased [Unknown]
  - Depression [Unknown]
  - Movement disorder [Unknown]
  - Urinary tract infection [Unknown]
  - Feeling abnormal [Unknown]
  - Speech disorder [Unknown]
  - Sepsis [Unknown]
  - Urinary tract infection [Unknown]
  - Liver function test decreased [Unknown]
  - Confusional state [Unknown]
  - Unresponsive to stimuli [Unknown]

NARRATIVE: CASE EVENT DATE: 202002
